FAERS Safety Report 6610682-1 (Version None)
Quarter: 2010Q1

REPORT INFORMATION
  Report Type: 
  Country: None (occurrence: None)
  Receive Date: 20100302
  Receipt Date: 20100223
  Transmission Date: 20100710
  Serious: Yes (Disabling)
  Sender: FDA-Public Use
  Company Number: A0846860A

PATIENT
  Age: 40 Year
  Sex: Male

DRUGS (1)
  1. ZINNAT [Suspect]
     Indication: BRONCHITIS
     Dosage: 500MG TWICE PER DAY
     Route: 048

REACTIONS (3)
  - BRONCHITIS [None]
  - BRONCHOSPASM [None]
  - PRODUCTIVE COUGH [None]
